FAERS Safety Report 20001498 (Version 1)
Quarter: 2021Q4

REPORT INFORMATION
  Report Type: Spontaneous
  Country: US (occurrence: US)
  Receive Date: 20211027
  Receipt Date: 20211027
  Transmission Date: 20220303
  Serious: Yes (Hospitalization)
  Sender: FDA-Public Use
  Company Number: None

PATIENT
  Sex: Female

DRUGS (6)
  1. IMATINIB [Suspect]
     Active Substance: IMATINIB
     Indication: Gastrointestinal stromal tumour
     Route: 048
     Dates: start: 20201223
  2. IMATINIB [Suspect]
     Active Substance: IMATINIB
     Route: 048
  3. BENDRYL [Concomitant]
  4. IRON [Concomitant]
     Active Substance: IRON
  5. VALSARTAN [Concomitant]
     Active Substance: VALSARTAN
  6. VITAMIN D3 [Concomitant]
     Active Substance: CHOLECALCIFEROL

REACTIONS (1)
  - Intentional dose omission [None]
